FAERS Safety Report 8839797 (Version 1)
Quarter: 2012Q4

REPORT INFORMATION
  Report Type: 
  Country: US (occurrence: US)
  Receive Date: 20121015
  Receipt Date: 20121015
  Transmission Date: 20130627
  Serious: No
  Sender: FDA-Public Use
  Company Number: US-BRISTOL-MYERS SQUIBB COMPANY-16542052

PATIENT
  Age: 55 Year
  Sex: Female

DRUGS (1)
  1. KENALOG-40 INJ [Suspect]

REACTIONS (6)
  - Hypertension [Unknown]
  - Headache [Unknown]
  - Cystitis [Unknown]
  - Anxiety [Unknown]
  - Insomnia [Unknown]
  - Depressed mood [Unknown]
